FAERS Safety Report 19462613 (Version 1)
Quarter: 2021Q2

REPORT INFORMATION
  Report Type: Report from Study
  Country: US (occurrence: US)
  Receive Date: 20210625
  Receipt Date: 20210625
  Transmission Date: 20210717
  Serious: Yes (Life-Threatening, Hospitalization, Other)
  Sender: FDA-Public Use
  Company Number: US-JAZZ-2021-US-010583

PATIENT
  Weight: 54.2 kg

DRUGS (6)
  1. CPX?351 [Suspect]
     Active Substance: CYTARABINE\DAUNORUBICIN
     Indication: ACUTE MYELOID LEUKAEMIA
     Dosage: 270 MILLIGRAM OF DAUNORUBICIN
     Route: 042
     Dates: start: 20210518, end: 20210522
  2. CYTARABINE. [Suspect]
     Active Substance: CYTARABINE
     Indication: ACUTE MYELOID LEUKAEMIA
     Dosage: 36 MILLIGRAM
     Dates: start: 20210525, end: 20210525
  3. METHOTREXATE. [Suspect]
     Active Substance: METHOTREXATE
     Indication: ACUTE MYELOID LEUKAEMIA
     Dosage: 12 MILLIGRAM
     Dates: start: 20210525, end: 20210525
  4. MYLOTARG [Suspect]
     Active Substance: GEMTUZUMAB OZOGAMICIN
     Indication: ACUTE MYELOID LEUKAEMIA
     Dosage: 4.5 MILLIGRAM
     Dates: start: 20210523, end: 20210523
  5. GILTERITINIB [Suspect]
     Active Substance: GILTERITINIB
     Indication: ACUTE MYELOID LEUKAEMIA
     Dosage: 1540 MILLIGRAM
     Dates: start: 20210603
  6. HYDROCORTISONE. [Suspect]
     Active Substance: HYDROCORTISONE
     Indication: ACUTE MYELOID LEUKAEMIA
     Dosage: 24 MILLIGRAM
     Dates: start: 20210525, end: 20210525

REACTIONS (11)
  - Cardiac tamponade [Recovering/Resolving]
  - Pericardial effusion [Unknown]
  - Epistaxis [Unknown]
  - Blood creatinine increased [Unknown]
  - Venoocclusive liver disease [Recovered/Resolved]
  - Acute kidney injury [Unknown]
  - Pleural effusion [Recovering/Resolving]
  - Embolism [Unknown]
  - Febrile neutropenia [Unknown]
  - Rash maculo-papular [Unknown]
  - Hypertension [Not Recovered/Not Resolved]

NARRATIVE: CASE EVENT DATE: 20210525
